FAERS Safety Report 21419241 (Version 1)
Quarter: 2022Q4

REPORT INFORMATION
  Report Type: Report from Study
  Country: BR (occurrence: BR)
  Receive Date: 20221006
  Receipt Date: 20221006
  Transmission Date: 20230112
  Serious: Yes (Other)
  Sender: FDA-Public Use
  Company Number: BR-BIOGEN-2022BI01159321

PATIENT
  Sex: Female
  Weight: 60.5 kg

DRUGS (3)
  1. TYSABRI [Suspect]
     Active Substance: NATALIZUMAB
     Indication: Multiple sclerosis
     Route: 050
  2. CALCIPREMIUM [Concomitant]
     Indication: Osteoporosis prophylaxis
     Dosage: 600MG + 400 UI
     Route: 050
     Dates: start: 2020
  3. covid-19 vaccine [Concomitant]
     Indication: COVID-19 prophylaxis
     Route: 050
     Dates: start: 20220908

REACTIONS (3)
  - Diabetes mellitus [Not Recovered/Not Resolved]
  - Blood cholesterol abnormal [Not Recovered/Not Resolved]
  - Thyroid disorder [Recovered/Resolved]

NARRATIVE: CASE EVENT DATE: 20200101
